FAERS Safety Report 8658825 (Version 2)
Quarter: 2013Q2

REPORT INFORMATION
  Report Type: Spontaneous
  Country: US (occurrence: None)
  Receive Date: 20120402
  Receipt Date: 20130118
  Transmission Date: 20140414
  Serious: Yes (Hospitalization, Other)
  Sender: FDA-Public Use
  Company Number: A-US2011-55245

PATIENT
  Age: 71 Year
  Sex: Male

DRUGS (3)
  1. TRACLEER [Suspect]
     Indication: PULMONARY ARTERIAL HYPERTENSION
     Dosage: ORAL
     Route: 048
  2. CALCIUM CHANNEL BLOCKERS [Concomitant]
  3. COUMADIN (WARFAIN SODIUM) [Concomitant]

REACTIONS (2)
  - DYSPNOEA [None]
  - Productive cough [None]
